FAERS Safety Report 23211467 (Version 1)
Quarter: 2023Q4

REPORT INFORMATION
  Report Type: Spontaneous
  Country: CN (occurrence: CN)
  Receive Date: 20231121
  Receipt Date: 20231121
  Transmission Date: 20240109
  Serious: Yes (Other)
  Sender: FDA-Public Use
  Company Number: CN-PFIZER INC-PV202300187318

PATIENT
  Age: 7 Month
  Sex: Female
  Weight: 6.8 kg

DRUGS (4)
  1. EPIRUBICIN [Suspect]
     Active Substance: EPIRUBICIN
     Indication: Malignant urinary tract neoplasm
     Dosage: 3.500 MG, 1X/DAY
     Route: 041
     Dates: start: 20230921, end: 20230923
  2. CYCLOPHOSPHAMIDE [Suspect]
     Active Substance: CYCLOPHOSPHAMIDE
     Indication: Malignant urinary tract neoplasm
     Dosage: 0.180 G, 1X/DAY
     Route: 041
     Dates: start: 20230921, end: 20230922
  3. DEXTROSE\SODIUM CHLORIDE [Concomitant]
     Active Substance: DEXTROSE\SODIUM CHLORIDE
     Dosage: 4:1 (100 ML)
     Route: 041
     Dates: start: 20230921, end: 20230921
  4. SODIUM CHLORIDE [Concomitant]
     Active Substance: SODIUM CHLORIDE
     Dosage: 0.9%, 100 ML
     Route: 041
     Dates: start: 20230921

REACTIONS (1)
  - Myelosuppression [Recovering/Resolving]

NARRATIVE: CASE EVENT DATE: 20230927
